FAERS Safety Report 7386033 (Version 2)
Quarter: 2013Q4

REPORT INFORMATION
  Report Type: Spontaneous
  Country: US (occurrence: None)
  Receive Date: 20100503
  Receipt Date: 20131219
  Transmission Date: 20140711
  Serious: Yes (Hospitalization, Other)
  Sender: FDA-Public Use
  Company Number: 2010S1002322

PATIENT
  Age: 49 Year
  Sex: Male
  Weight: 118.84 kg

DRUGS (4)
  1. FLEET PHOSPHO-SODA [Suspect]
     Indication: COLONOSCOPY
     Dosage: 135 ML; TOTAL; PO
     Route: 048
     Dates: start: 20080907, end: 20080907
  2. LISINOPRIL (LISINOPRIL) (10 MILLIGRAM, TABLET) [Concomitant]
     Indication: SURGERY
     Dosage: 135 ML; TOTAL PO
     Route: 048
     Dates: start: 20080921, end: 20080921
  3. SAW PALMETTO (SERENOA REPENS) [Concomitant]
     Indication: COLONOSCOPY
     Dosage: 135 ML;TOTAL PO
     Dates: start: 20080907, end: 20080907
  4. GOLDEN SEAL (HYDRASTIS CANADENSIS) [Concomitant]
     Dosage: 135 ML;TOTAL PO
     Route: 048
     Dates: start: 20080907, end: 20080907

REACTIONS (4)
  - Renal failure acute [None]
  - Haemodialysis [None]
  - Nephrocalcinosis [None]
  - Renal tubular disorder [None]
